FAERS Safety Report 24239145 (Version 1)
Quarter: 2024Q3

REPORT INFORMATION
  Report Type: Spontaneous
  Country: FR (occurrence: None)
  Receive Date: 20240822
  Receipt Date: 20240822
  Transmission Date: 20241017
  Serious: Yes (Other)
  Sender: ASTRAZENECA
  Company Number: 2024A188983

PATIENT
  Age: 45 Year
  Sex: Male

DRUGS (12)
  1. QUETIAPINE [Suspect]
     Active Substance: QUETIAPINE
     Indication: Schizophrenia
     Route: 048
     Dates: start: 20240509
  2. PALIPERIDONE PALMITATE [Suspect]
     Active Substance: PALIPERIDONE PALMITATE
     Route: 030
     Dates: start: 20240521
  3. LOXAPINE [Suspect]
     Active Substance: LOXAPINE
     Dates: start: 20240520
  4. CYAMEMAZINE [Suspect]
     Active Substance: CYAMEMAZINE
     Indication: Psychotic disorder
     Dosage: 50 MG/5 ML, AMPOULE SOLUTION FOR INJECTION
     Route: 048
     Dates: start: 20240520
  5. CYAMEMAZINE [Suspect]
     Active Substance: CYAMEMAZINE
     Indication: Agitation
     Dosage: 50 MG/5 ML, AMPOULE SOLUTION FOR INJECTION
     Route: 048
     Dates: start: 20240520
  6. CYAMEMAZINE [Suspect]
     Active Substance: CYAMEMAZINE
     Indication: Aggression
     Dosage: 50 MG/5 ML, AMPOULE SOLUTION FOR INJECTION
     Route: 048
     Dates: start: 20240520
  7. CYAMEMAZINE [Suspect]
     Active Substance: CYAMEMAZINE
     Indication: Psychotic disorder
     Dosage: 40 MG/ML, DROP SOLUTION FOR ORAL USE
     Route: 048
     Dates: start: 20240521
  8. CYAMEMAZINE [Suspect]
     Active Substance: CYAMEMAZINE
     Indication: Agitation
     Dosage: 40 MG/ML, DROP SOLUTION FOR ORAL USE
     Route: 048
     Dates: start: 20240521
  9. CYAMEMAZINE [Suspect]
     Active Substance: CYAMEMAZINE
     Indication: Aggression
     Dosage: 40 MG/ML, DROP SOLUTION FOR ORAL USE
     Route: 048
     Dates: start: 20240521
  10. RISPERIDONE [Suspect]
     Active Substance: RISPERIDONE
     Dosage: 1MG/ML
     Route: 048
     Dates: start: 20240521
  11. BISOPROLOL [Concomitant]
     Active Substance: BISOPROLOL\BISOPROLOL FUMARATE
  12. DIAZEPAM [Concomitant]
     Active Substance: DIAZEPAM

REACTIONS (5)
  - Erythema [Recovered/Resolved]
  - Blister [Recovered/Resolved]
  - Skin burning sensation [Recovered/Resolved]
  - Feeling hot [Recovered/Resolved]
  - Pruritus [Recovered/Resolved]

NARRATIVE: CASE EVENT DATE: 20240529
